FAERS Safety Report 16448890 (Version 3)
Quarter: 2019Q2

REPORT INFORMATION
  Report Type: Report from Study
  Country: CA (occurrence: CA)
  Receive Date: 20190619
  Receipt Date: 20190628
  Transmission Date: 20190711
  Serious: No
  Sender: FDA-Public Use
  Company Number: CA-BEH-2019103186

PATIENT
  Age: 47 Year
  Sex: Female
  Weight: 52.2 kg

DRUGS (9)
  1. SYMBICORT [Concomitant]
     Active Substance: BUDESONIDE\FORMOTEROL FUMARATE DIHYDRATE
  2. HIZENTRA [Suspect]
     Active Substance: HUMAN IMMUNOGLOBULIN G
     Indication: PRIMARY IMMUNODEFICIENCY SYNDROME
     Dosage: 12 GRAM, QOW
     Route: 058
     Dates: start: 20190527
  3. HIZENTRA [Suspect]
     Active Substance: HUMAN IMMUNOGLOBULIN G
     Dosage: 12 GRAM, TOT
     Route: 058
     Dates: start: 20190603, end: 20190603
  4. HIZENTRA [Suspect]
     Active Substance: HUMAN IMMUNOGLOBULIN G
     Dosage: 6 GRAM, QW
     Route: 058
  5. HIZENTRA [Suspect]
     Active Substance: HUMAN IMMUNOGLOBULIN G
     Dosage: 6 GRAM, QOW
     Route: 058
     Dates: start: 20190527
  6. HIZENTRA [Suspect]
     Active Substance: HUMAN IMMUNOGLOBULIN G
     Dosage: 6 GRAM, TOT
     Route: 058
     Dates: start: 20190610, end: 20190610
  7. SINGULAIR [Concomitant]
     Active Substance: MONTELUKAST SODIUM
  8. BENADRYL [ACRIVASTINE] [Concomitant]
     Active Substance: ACRIVASTINE
     Dosage: UNK, PRN
  9. HIZENTRA [Suspect]
     Active Substance: HUMAN IMMUNOGLOBULIN G
     Dosage: 12 GRAM, TOT
     Route: 058
     Dates: start: 20190527, end: 20190527

REACTIONS (15)
  - Pruritus [Recovered/Resolved]
  - Urinary tract infection [Recovered/Resolved]
  - Infusion site swelling [Unknown]
  - Injection site discomfort [Unknown]
  - Infusion site swelling [Unknown]
  - Administration site erythema [Unknown]
  - Injection site discomfort [Recovered/Resolved]
  - Infusion site pain [Unknown]
  - Discomfort [Recovered/Resolved]
  - Infusion site swelling [Unknown]
  - Fatigue [Unknown]
  - Infusion site erythema [Unknown]
  - Infusion site pruritus [Unknown]
  - Nausea [Unknown]
  - Infusion site bruising [Unknown]

NARRATIVE: CASE EVENT DATE: 201905
